FAERS Safety Report 24338945 (Version 1)
Quarter: 2024Q3

REPORT INFORMATION
  Report Type: Spontaneous
  Country: US (occurrence: US)
  Receive Date: 20240919
  Receipt Date: 20240919
  Transmission Date: 20241016
  Serious: No
  Sender: DR REDDYS
  Company Number: US-DRL-USA-SPO/USA/24/0013524

PATIENT
  Age: 80 Year
  Sex: Male

DRUGS (1)
  1. MINOCYCLINE [Suspect]
     Active Substance: MINOCYCLINE HYDROCHLORIDE
     Indication: Rosacea
     Dosage: FOR 15 YEARS
     Route: 048

REACTIONS (3)
  - Retinal pigmentation [Unknown]
  - Skin hyperpigmentation [Unknown]
  - Scleral discolouration [Unknown]
